FAERS Safety Report 7077769-3 (Version None)
Quarter: 2010Q4

REPORT INFORMATION
  Report Type: 
  Country: None (occurrence: None)
  Receive Date: 20101101
  Receipt Date: 20101019
  Transmission Date: 20110411
  Serious: Yes (Other)
  Sender: FDA-Public Use
  Company Number: PHHY2010BR71283

PATIENT
  Sex: Female

DRUGS (2)
  1. DIOVAN [Suspect]
     Indication: HYPERTENSION
     Dosage: 80 MG, ONE TABLET, DAILY
  2. DIOVAN [Suspect]
     Dosage: 160 MG, TWO TABLETS DAILY

REACTIONS (2)
  - THYROID NEOPLASM [None]
  - THYROIDECTOMY [None]
